FAERS Safety Report 6135957-4 (Version None)
Quarter: 2009Q1

REPORT INFORMATION
  Report Type: 
  Country: None (occurrence: None)
  Receive Date: 20090329
  Receipt Date: 20090212
  Transmission Date: 20090719
  Serious: No
  Sender: FDA-Public Use
  Company Number: US-BAUSCH-2009BL000597

PATIENT
  Age: 67 Year
  Sex: Female
  Weight: 60 kg

DRUGS (12)
  1. ALAWAY [Suspect]
     Indication: EYE ALLERGY
     Route: 047
     Dates: start: 20090211, end: 20090211
  2. XANAX /USA/ [Concomitant]
     Indication: ANXIETY
     Route: 048
     Dates: start: 19890101
  3. PRILOSEC [Concomitant]
     Indication: GASTROOESOPHAGEAL REFLUX DISEASE
     Route: 048
  4. PROVENTIL /USA/ [Concomitant]
     Indication: PULMONARY HYPERTENSION
     Route: 049
     Dates: start: 19880101
  5. ZYRTEC [Concomitant]
     Indication: HYPERSENSITIVITY
     Route: 048
     Dates: start: 19990101
  6. SENOKOT [Concomitant]
     Indication: CONSTIPATION
     Route: 048
  7. TYLENOL ^JOHNSON + JOHNSON^ [Concomitant]
     Indication: PAIN
     Route: 048
  8. ASPIRIN [Concomitant]
     Indication: DRUG USE FOR UNKNOWN INDICATION
     Route: 048
  9. MYLANTA [Concomitant]
     Indication: DRUG USE FOR UNKNOWN INDICATION
     Route: 048
  10. VITAMIN B-12 [Concomitant]
     Indication: VITAMIN SUPPLEMENTATION
     Route: 048
  11. VITAMIN B6 [Concomitant]
     Indication: VITAMIN SUPPLEMENTATION
     Route: 048
  12. MULTI-VITAMINS [Concomitant]
     Indication: VITAMIN SUPPLEMENTATION
     Route: 048

REACTIONS (3)
  - OEDEMA PERIPHERAL [None]
  - PRURITUS [None]
  - RASH ERYTHEMATOUS [None]
